FAERS Safety Report 6385256-0 (Version None)
Quarter: 2009Q4

REPORT INFORMATION
  Report Type: 
  Country: None (occurrence: None)
  Receive Date: 20091002
  Receipt Date: 20080730
  Transmission Date: 20100525
  Serious: No
  Sender: FDA-Public Use
  Company Number: US-ASTRAZENECA-2008UW15552

PATIENT
  Sex: Female
  Weight: 82.6 kg

DRUGS (5)
  1. ARIMIDEX [Suspect]
     Indication: BREAST CANCER FEMALE
     Route: 048
  2. LIPITOR [Concomitant]
  3. TOPROL-XL [Concomitant]
     Route: 048
  4. SYNTHROID [Concomitant]
  5. DIURETIC [Concomitant]

REACTIONS (5)
  - ARTHRALGIA [None]
  - BONE DENSITY DECREASED [None]
  - HYPOTHYROIDISM [None]
  - JOINT STIFFNESS [None]
  - WEIGHT INCREASED [None]
